FAERS Safety Report 6746128-2 (Version None)
Quarter: 2010Q2

REPORT INFORMATION
  Report Type: 
  Country: None (occurrence: None)
  Receive Date: 20100528
  Receipt Date: 20090730
  Transmission Date: 20101027
  Serious: No
  Sender: FDA-Public Use
  Company Number: US-ASTRAZENECA-2009SE06381

PATIENT
  Sex: Male

DRUGS (2)
  1. OMEPRAZOLE [Suspect]
     Dosage: 1-2 DAILY
     Route: 048
     Dates: start: 20090520, end: 20090522
  2. NEXIUM [Concomitant]

REACTIONS (5)
  - BLOOD GLUCOSE INCREASED [None]
  - DYSPEPSIA [None]
  - FAECES HARD [None]
  - PRURITUS [None]
  - TREMOR [None]
